FAERS Safety Report 21566577 (Version 5)
Quarter: 2023Q2

REPORT INFORMATION
  Report Type: Spontaneous
  Country: CZ (occurrence: CZ)
  Receive Date: 20221108
  Receipt Date: 20230427
  Transmission Date: 20230721
  Serious: Yes (Hospitalization, Other)
  Sender: FDA-Public Use
  Company Number: CZ-MYLANLABS-2022M1092932

PATIENT
  Age: 42 Year
  Sex: Female

DRUGS (18)
  1. TOPIRAMATE [Suspect]
     Active Substance: TOPIRAMATE
     Indication: Migraine
     Dosage: 75 MILLIGRAM, QD (DAILY FOR 2 YEARS)
     Route: 065
     Dates: end: 201903
  2. TOPIRAMATE [Suspect]
     Active Substance: TOPIRAMATE
     Indication: Analgesic therapy
  3. TOPIRAMATE [Suspect]
     Active Substance: TOPIRAMATE
     Indication: Migraine prophylaxis
  4. VENLAFAXINE [Suspect]
     Active Substance: VENLAFAXINE HYDROCHLORIDE
     Indication: Analgesic therapy
     Dosage: UNK
     Route: 065
  5. VENLAFAXINE [Suspect]
     Active Substance: VENLAFAXINE HYDROCHLORIDE
     Indication: Migraine prophylaxis
  6. VENLAFAXINE [Suspect]
     Active Substance: VENLAFAXINE HYDROCHLORIDE
     Indication: Migraine
  7. SUMATRIPTAN [Suspect]
     Active Substance: SUMATRIPTAN
     Indication: Migraine
     Dosage: 50 MILLIGRAM, QD (DAILY)
     Route: 065
  8. SUMATRIPTAN [Suspect]
     Active Substance: SUMATRIPTAN
     Indication: Analgesic therapy
  9. NAPROXEN [Suspect]
     Active Substance: NAPROXEN
     Indication: Migraine
     Dosage: 10-12 TABLETS, MONTHLY
     Route: 065
  10. NAPROXEN [Suspect]
     Active Substance: NAPROXEN
     Indication: Analgesic therapy
  11. INDOMETHACIN [Suspect]
     Active Substance: INDOMETHACIN
     Indication: Migraine
     Dosage: 20 SUPPOSITORIES, MONTHLY (DURING MONTH)
     Route: 065
  12. INDOMETHACIN [Suspect]
     Active Substance: INDOMETHACIN
     Indication: Analgesic therapy
  13. CINNARIZINE [Suspect]
     Active Substance: CINNARIZINE
     Indication: Analgesic therapy
     Dosage: 100 MILLIGRAM, QD (DAILY FOR 2.5 YEARS)
     Route: 065
  14. CINNARIZINE [Suspect]
     Active Substance: CINNARIZINE
     Indication: Migraine
  15. CINNARIZINE [Suspect]
     Active Substance: CINNARIZINE
     Indication: Migraine prophylaxis
  16. AMITRIPTYLINE [Suspect]
     Active Substance: AMITRIPTYLINE
     Indication: Analgesic therapy
     Dosage: 25 MILLIGRAM, QD (DAILY FOR 3 MONTHS)
     Route: 065
  17. AMITRIPTYLINE [Suspect]
     Active Substance: AMITRIPTYLINE
     Indication: Migraine
  18. AMITRIPTYLINE [Suspect]
     Active Substance: AMITRIPTYLINE
     Indication: Migraine prophylaxis

REACTIONS (9)
  - Drug dependence [Recovering/Resolving]
  - Medication overuse headache [Recovering/Resolving]
  - Cognitive disorder [Recovered/Resolved]
  - Drug intolerance [Unknown]
  - Toxicity to various agents [Recovering/Resolving]
  - Treatment noncompliance [Unknown]
  - Weight increased [Unknown]
  - Drug ineffective [Unknown]
  - Off label use [Unknown]

NARRATIVE: CASE EVENT DATE: 20220801
